FAERS Safety Report 6622090-8 (Version None)
Quarter: 2010Q1

REPORT INFORMATION
  Report Type: 
  Country: None (occurrence: None)
  Receive Date: 20100304
  Receipt Date: 20100223
  Transmission Date: 20100710
  Serious: Yes (Other)
  Sender: FDA-Public Use
  Company Number: 2010SP011428

PATIENT
  Age: 18 Year
  Sex: Female
  Weight: 87.5 kg

DRUGS (3)
  1. IMPLANON [Suspect]
     Indication: DRUG USE FOR UNKNOWN INDICATION
     Dosage: 68 MG; SC
     Route: 058
     Dates: start: 20091217
  2. IMPLANON [Suspect]
  3. LIDOCAINE [Suspect]
     Indication: DRUG USE FOR UNKNOWN INDICATION
     Dosage: 1 DF; SC
     Route: 058

REACTIONS (1)
  - IMPLANT SITE INFECTION [None]
